FAERS Safety Report 7653230-X (Version None)
Quarter: 2011Q3

REPORT INFORMATION
  Report Type: 
  Country: None (occurrence: None)
  Receive Date: 20110728
  Receipt Date: 20110718
  Transmission Date: 20111222
  Serious: Yes (Hospitalization, Other)
  Sender: FDA-Public Use
  Company Number: 120020

PATIENT
  Age: 79 Year
  Sex: Male

DRUGS (2)
  1. CLINDAMYCIN [Concomitant]
  2. CLINDAMYCIN [Suspect]
     Dosage: 600MG IN 4ML, INTRA-ARTERIAL INJECTION
     Route: 013

REACTIONS (6)
  - PERIPHERAL COLDNESS [None]
  - INCORRECT ROUTE OF DRUG ADMINISTRATION [None]
  - VASCULAR INJURY [None]
  - SKIN DISCOLOURATION [None]
  - MEDICATION ERROR [None]
  - PAIN IN EXTREMITY [None]
